FAERS Safety Report 8065541-7 (Version None)
Quarter: 2012Q1

REPORT INFORMATION
  Report Type: 
  Country: None (occurrence: None)
  Receive Date: 20120124
  Receipt Date: 20120113
  Transmission Date: 20120608
  Serious: Yes (Death)
  Sender: FDA-Public Use
  Company Number: JP-AMGEN-JPNSP2012004055

PATIENT
  Age: 80 Year
  Sex: Female

DRUGS (2)
  1. ROMIPLATE [Suspect]
     Indication: IDIOPATHIC THROMBOCYTOPENIC PURPURA
     Dosage: 1 MUG/KG, UNK
     Route: 058
     Dates: start: 20120111, end: 20120111
  2. PROMACTA [Concomitant]
     Dosage: UNK
     Dates: start: 20110801

REACTIONS (2)
  - CEREBRAL HAEMORRHAGE [None]
  - RESPIRATORY FAILURE [None]
